FAERS Safety Report 24250305 (Version 2)
Quarter: 2024Q3

REPORT INFORMATION
  Report Type: Report from Study
  Country: US (occurrence: None)
  Receive Date: 20240826
  Receipt Date: 20240830
  Transmission Date: 20241017
  Serious: Yes (Other)
  Sender: ASTRAZENECA
  Company Number: 2024A193153

PATIENT
  Sex: Female

DRUGS (1)
  1. BEVESPI AEROSPHERE [Suspect]
     Active Substance: FORMOTEROL FUMARATE\GLYCOPYRROLATE
     Route: 055

REACTIONS (4)
  - Glaucoma [Unknown]
  - Device use issue [Unknown]
  - Wrong technique in device usage process [Unknown]
  - Prescription drug used without a prescription [Unknown]
